FAERS Safety Report 11706487 (Version 4)
Quarter: 2016Q1

REPORT INFORMATION
  Report Type: Spontaneous
  Country: US (occurrence: US)
  Receive Date: 20151106
  Receipt Date: 20160203
  Transmission Date: 20160525
  Serious: No
  Sender: FDA-Public Use
  Company Number: US-TEVA-607131USA

PATIENT
  Sex: Female

DRUGS (1)
  1. NUVIGIL [Suspect]
     Active Substance: ARMODAFINIL
     Route: 065

REACTIONS (19)
  - Somnolence [Unknown]
  - Muscle tightness [Unknown]
  - Drug ineffective [Unknown]
  - Asthenia [Unknown]
  - Wrong technique in product usage process [Unknown]
  - Muscle spasms [Unknown]
  - Pruritus [Unknown]
  - Muscular weakness [Unknown]
  - Neck pain [Unknown]
  - Feeling hot [Unknown]
  - Choking sensation [Unknown]
  - Paraesthesia [Unknown]
  - Fatigue [Unknown]
  - Heart rate increased [Unknown]
  - Gait disturbance [Unknown]
  - Drug dose omission [Unknown]
  - Dyspnoea [Unknown]
  - Alopecia [Unknown]
  - Hypoaesthesia oral [Unknown]
